FAERS Safety Report 19051052 (Version 1)
Quarter: 2021Q1

REPORT INFORMATION
  Report Type: Spontaneous
  Country: US (occurrence: US)
  Receive Date: 20210324
  Receipt Date: 20210324
  Transmission Date: 20210420
  Serious: No
  Sender: FDA-Public Use
  Company Number: US-ALLERGAN-2036408US

PATIENT
  Age: 80 Year
  Sex: Female

DRUGS (6)
  1. UNSPECIFIED NASAL SPRAY [Concomitant]
     Active Substance: UNSPECIFIED INGREDIENT
  2. LOSARTAN. [Concomitant]
     Active Substance: LOSARTAN
  3. LORAZEPAM. [Concomitant]
     Active Substance: LORAZEPAM
  4. UNSPECIFIED SUPPLEMENTS [Concomitant]
  5. MESALAZINE 1 GM SUP [Suspect]
     Active Substance: MESALAMINE
     Indication: COLITIS ULCERATIVE
     Dosage: 800 MG 2 TABLETS TWICE A DAY
     Route: 054
  6. HYDROCHLOROTHIAZIDE. [Concomitant]
     Active Substance: HYDROCHLOROTHIAZIDE

REACTIONS (5)
  - Abdominal pain upper [Recovered/Resolved]
  - Packaging design issue [Unknown]
  - Product shape issue [Unknown]
  - Product quality issue [Unknown]
  - Product colour issue [Unknown]

NARRATIVE: CASE EVENT DATE: 202008
